FAERS Safety Report 8088402-6 (Version None)
Quarter: 2012Q1

REPORT INFORMATION
  Report Type: 
  Country: None (occurrence: None)
  Receive Date: 20120128
  Receipt Date: 20110603
  Transmission Date: 20120608
  Serious: No
  Sender: FDA-Public Use
  Company Number: US-ABBOTT-11P-163-0730716-00

PATIENT
  Sex: Female
  Weight: 69.008 kg

DRUGS (7)
  1. ACTONEL [Concomitant]
     Indication: OSTEOPOROSIS
  2. HUMIRA [Suspect]
     Indication: CROHN'S DISEASE
     Dates: start: 20110520, end: 20110520
  3. ASACOL [Concomitant]
     Indication: CROHN'S DISEASE
     Dates: start: 20110401
  4. CARDIZEM [Concomitant]
     Indication: HYPERTENSION
     Dates: start: 20110101
  5. LASIX [Concomitant]
     Indication: HYPERTENSION
  6. SYNTHROID [Concomitant]
     Indication: HYPOTHYROIDISM
  7. CELEXA [Concomitant]
     Indication: ANXIETY

REACTIONS (6)
  - OROPHARYNGEAL PAIN [None]
  - NASAL CONGESTION [None]
  - COUGH [None]
  - UPPER RESPIRATORY TRACT INFECTION [None]
  - RESPIRATORY TRACT CONGESTION [None]
  - PYREXIA [None]
